FAERS Safety Report 10926250 (Version 1)
Quarter: 2015Q1

REPORT INFORMATION
  Report Type: Spontaneous
  Country: US (occurrence: US)
  Receive Date: 20150318
  Receipt Date: 20150318
  Transmission Date: 20150721
  Serious: No
  Sender: FDA-Public Use
  Company Number: US-009507513-1503USA004898

PATIENT
  Sex: Male

DRUGS (4)
  1. LEVEMIR [Suspect]
     Active Substance: INSULIN DETEMIR
     Dosage: 50 UNITS, UNK
  2. JANUVIA [Suspect]
     Active Substance: SITAGLIPTIN PHOSPHATE
     Dosage: UNK
     Route: 048
  3. METFORMIN [Suspect]
     Active Substance: METFORMIN HYDROCHLORIDE
     Dosage: UNK
  4. LEVEMIR [Suspect]
     Active Substance: INSULIN DETEMIR
     Dosage: 40 UNITS, UNK

REACTIONS (2)
  - Renal impairment [Unknown]
  - Blood glucose increased [Recovered/Resolved]
